FAERS Safety Report 5227078-X (Version None)
Quarter: 2007Q1

REPORT INFORMATION
  Report Type: 
  Country: None (occurrence: None)
  Receive Date: 20070202
  Receipt Date: 20070129
  Transmission Date: 20070707
  Serious: Yes (Hospitalization)
  Sender: FDA-Public Use
  Company Number: US-AMGEN-US202952

PATIENT
  Sex: Female
  Weight: 69.5 kg

DRUGS (6)
  1. ENBREL [Suspect]
     Indication: RHEUMATOID ARTHRITIS
     Route: 058
     Dates: start: 20050801, end: 20060825
  2. FORTEO [Concomitant]
     Route: 065
     Dates: start: 20050701
  3. LEXAPRO [Concomitant]
     Route: 065
     Dates: start: 20050701
  4. ALEVE [Concomitant]
     Route: 065
  5. NEXIUM [Concomitant]
     Route: 065
  6. ESTRACE [Concomitant]
     Route: 067

REACTIONS (5)
  - CELLULITIS [None]
  - CONSTIPATION [None]
  - HERPES ZOSTER DISSEMINATED [None]
  - POST HERPETIC NEURALGIA [None]
  - URINARY RETENTION [None]
